FAERS Safety Report 14260049 (Version 2)
Quarter: 2018Q3

REPORT INFORMATION
  Report Type: Spontaneous
  Country: US (occurrence: US)
  Receive Date: 20171207
  Receipt Date: 20180808
  Transmission Date: 20181010
  Serious: No
  Sender: FDA-Public Use
  Company Number: US-VIFOR (INTERNATIONAL) INC.-VIT-2017-10000

PATIENT
  Sex: Male

DRUGS (8)
  1. DILTIAZEM HYDROCHLORIDE. [Concomitant]
     Active Substance: DILTIAZEM HYDROCHLORIDE
  2. INSULIN [Concomitant]
     Active Substance: INSULIN NOS
  3. TORASEMIDE [Concomitant]
     Active Substance: TORSEMIDE
  4. VELTASSA [Suspect]
     Active Substance: PATIROMER
     Indication: HYPERKALAEMIA
     Route: 048
  5. OMEGA 3 500 [Concomitant]
  6. LANTUS SOLOSTAR [Concomitant]
     Active Substance: INSULIN GLARGINE
  7. VITAMINS NOS [Concomitant]
     Active Substance: VITAMINS
  8. VELTASSA [Suspect]
     Active Substance: PATIROMER
     Dosage: 1/2 PACKET ON SOME DAYS

REACTIONS (3)
  - Constipation [Unknown]
  - Incorrect dose administered [Unknown]
  - Diarrhoea [Unknown]
